FAERS Safety Report 14686220 (Version 3)
Quarter: 2018Q2

REPORT INFORMATION
  Report Type: Spontaneous
  Country: ES (occurrence: ES)
  Receive Date: 20180327
  Receipt Date: 20180420
  Transmission Date: 20180711
  Serious: Yes (Hospitalization)
  Sender: FDA-Public Use
  Company Number: ES-ELI_LILLY_AND_COMPANY-ES201803007314

PATIENT
  Age: 63 Year
  Sex: Female

DRUGS (21)
  1. LIRICA [Concomitant]
     Active Substance: PREGABALIN
     Indication: PAIN
     Dosage: 75 MG, EACH MORNING
     Dates: start: 2014
  2. AMLODIPIN                          /00972401/ [Concomitant]
     Active Substance: AMLODIPINE BESYLATE
     Indication: BLOOD PRESSURE ABNORMAL
     Dosage: UNK, EACH EVENING
     Route: 065
     Dates: start: 2016
  3. RUPAFIN [Concomitant]
     Active Substance: RUPATADINE FUMARATE
     Indication: PRURITUS
     Dosage: 10 MG, EACH EVENING
     Dates: start: 2015
  4. HUMALOG [Suspect]
     Active Substance: INSULIN LISPRO
     Indication: TYPE 2 DIABETES MELLITUS
     Dosage: 48 IU, BID
     Route: 058
     Dates: start: 2011
  5. HUMALOG [Suspect]
     Active Substance: INSULIN LISPRO
     Dosage: 30 IU, PRN
     Route: 058
     Dates: start: 2011
  6. TRAJENTA [Concomitant]
     Active Substance: LINAGLIPTIN
     Indication: TYPE 2 DIABETES MELLITUS
     Dosage: 5 MG, EACH MORNING
     Route: 065
     Dates: start: 2014
  7. HEMOVAS [Concomitant]
     Dosage: 40 MG, EACH EVENING
     Dates: start: 2014
  8. DEFLAZACORT [Concomitant]
     Active Substance: DEFLAZACORT
     Dosage: 0.25 DF, UNK
     Route: 065
  9. ARAVA [Concomitant]
     Active Substance: LEFLUNOMIDE
     Indication: PAIN
     Dosage: 20 MG, QOD
     Route: 065
     Dates: start: 2010
  10. MORPHINE [Concomitant]
     Active Substance: MORPHINE
     Indication: PAIN
     Dosage: 50 MG, OTHER EVERY 72H
     Route: 062
     Dates: start: 201709
  11. FUROSEMIDE. [Concomitant]
     Active Substance: FUROSEMIDE
     Indication: DIURETIC THERAPY
     Dosage: 40 MG, EACH EVENING
     Route: 065
     Dates: start: 2014
  12. HEMOVAS [Concomitant]
     Indication: CARDIOVASCULAR DISORDER
     Dosage: 40 MG, EACH MORNING
     Route: 065
     Dates: start: 2014
  13. LIRICA [Concomitant]
     Active Substance: PREGABALIN
     Dosage: 150 MG, DAILY
     Route: 065
     Dates: start: 2014
  14. INEGY [Concomitant]
     Active Substance: EZETIMIBE\SIMVASTATIN
     Indication: BLOOD CHOLESTEROL
     Dosage: 10 MG, EACH EVENING
     Route: 065
     Dates: start: 2014
  15. VALSARTAN. [Concomitant]
     Active Substance: VALSARTAN
     Indication: BLOOD PRESSURE ABNORMAL
     Dosage: 160 MG, EACH MORNING
     Route: 065
     Dates: start: 2014
  16. BYDUREON [Concomitant]
     Active Substance: EXENATIDE
     Indication: TYPE 2 DIABETES MELLITUS
     Dosage: 20 MG, WEEKLY (1/W)
     Route: 065
     Dates: start: 201708
  17. DEFLAZACORT [Concomitant]
     Active Substance: DEFLAZACORT
     Indication: PAIN
     Dosage: 30 MG, OTHER 1/4 ALTERNATIVE DAYS
  18. DELTIUS [Concomitant]
     Active Substance: CHOLECALCIFEROL
     Indication: PRODUCT USED FOR UNKNOWN INDICATION
     Dosage: 2.5 ML, EACH MORNING
     Route: 065
     Dates: start: 201706
  19. LIRICA [Concomitant]
     Active Substance: PREGABALIN
     Dosage: 75 MG, PRN
  20. ASPIRINA [Concomitant]
     Active Substance: ASPIRIN
     Indication: PRODUCT USED FOR UNKNOWN INDICATION
     Dosage: 100 MG, EACH EVENING
     Route: 065
     Dates: start: 2013
  21. LORAZEPAM. [Concomitant]
     Active Substance: LORAZEPAM
     Indication: SLEEP DISORDER
     Dosage: 1 MG, EACH EVENING
     Route: 065
     Dates: start: 2015

REACTIONS (8)
  - Thrombosis [Recovering/Resolving]
  - Hypophagia [Not Recovered/Not Resolved]
  - Decreased appetite [Not Recovered/Not Resolved]
  - Blood glucose increased [Not Recovered/Not Resolved]
  - Nasopharyngitis [Not Recovered/Not Resolved]
  - Weight decreased [Recovered/Resolved]
  - Abdominal distension [Not Recovered/Not Resolved]
  - Blood glucose decreased [Recovering/Resolving]

NARRATIVE: CASE EVENT DATE: 201803
